FAERS Safety Report 18446030 (Version 1)
Quarter: 2020Q4

REPORT INFORMATION
  Report Type: Report from Study
  Country: CA (occurrence: CA)
  Receive Date: 20201030
  Receipt Date: 20201030
  Transmission Date: 20210114
  Serious: Yes (Life-Threatening, Other)
  Sender: FDA-Public Use
  Company Number: CA-JNJFOC-20190445709

PATIENT
  Age: 64 Year
  Sex: Female
  Weight: 67.8 kg

DRUGS (2)
  1. REMICADE [Suspect]
     Active Substance: INFLIXIMAB
     Route: 042
  2. REMICADE [Suspect]
     Active Substance: INFLIXIMAB
     Indication: PSORIASIS
     Dosage: ON 22-OCT-2020, THE PATIENT RECEIVED INFUSION
     Route: 042
     Dates: start: 20110415

REACTIONS (1)
  - Acute kidney injury [Not Recovered/Not Resolved]
